FAERS Safety Report 9779816 (Version 5)
Quarter: 2018Q1

REPORT INFORMATION
  Report Type: Other
  Country: US (occurrence: US)
  Receive Date: 20131223
  Receipt Date: 20180228
  Transmission Date: 20180509
  Serious: Yes (Hospitalization, Disabling, Other)
  Sender: FDA-Public Use
  Company Number: US-ACORDA-ACO_100799_2013

PATIENT
  Age: 55 Year
  Sex: Female
  Weight: 60.77 kg

DRUGS (7)
  1. AMPYRA [Suspect]
     Active Substance: DALFAMPRIDINE
     Indication: GAIT DISTURBANCE
     Dosage: 10 MG, BID
     Route: 048
     Dates: start: 201211
  2. ZYRTEC [Concomitant]
     Active Substance: CETIRIZINE HYDROCHLORIDE
     Indication: PRODUCT USED FOR UNKNOWN INDICATION
     Dosage: UNK
     Dates: start: 2005
  3. TECFIDERA [Suspect]
     Active Substance: DIMETHYL FUMARATE
     Indication: MULTIPLE SCLEROSIS
     Dosage: 240 MG, BID
     Route: 048
     Dates: start: 201211
  4. BACLOFEN. [Suspect]
     Active Substance: BACLOFEN
     Indication: PRODUCT USED FOR UNKNOWN INDICATION
     Dosage: UNK
     Route: 065
  5. GABAPENTIN. [Concomitant]
     Active Substance: GABAPENTIN
     Indication: PRODUCT USED FOR UNKNOWN INDICATION
     Dosage: 400 MG, UNK
     Route: 065
     Dates: start: 2002
  6. CLARITIN [Concomitant]
     Active Substance: LORATADINE
     Indication: PRODUCT USED FOR UNKNOWN INDICATION
     Dosage: UNK
     Dates: start: 2005
  7. VITAMIN D [Concomitant]
     Active Substance: CHOLECALCIFEROL
     Indication: PRODUCT USED FOR UNKNOWN INDICATION
     Dosage: UNK,UNK
     Route: 065

REACTIONS (8)
  - Confusional state [Recovered/Resolved]
  - Adverse drug reaction [Recovered/Resolved]
  - Therapeutic response unexpected [Unknown]
  - Flushing [Recovered/Resolved]
  - Hemiplegia [Recovering/Resolving]
  - Paraesthesia [Recovering/Resolving]
  - Multiple sclerosis relapse [Recovered/Resolved]
  - Hypoaesthesia [Recovering/Resolving]

NARRATIVE: CASE EVENT DATE: 2013
